FAERS Safety Report 4273746-6 (Version None)
Quarter: 2004Q1

REPORT INFORMATION
  Report Type: 
  Country: None (occurrence: None)
  Receive Date: 20040119
  Receipt Date: 19940929
  Transmission Date: 20041129
  Serious: Yes (Hospitalization, Disabling)
  Sender: FDA-Public Use
  Company Number: USA/94/01938/PLO

PATIENT
  Age: 33 Year
  Sex: Female

DRUGS (3)
  1. AMOXICILLIN [Concomitant]
  2. TYLENOL [Concomitant]
  3. PARLODEL [Suspect]
     Indication: SUPPRESSED LACTATION
     Dosage: 2.5 MG, BID
     Route: 048
     Dates: start: 19920915

REACTIONS (5)
  - APALLIC SYNDROME [None]
  - ARTERIOVENOUS MALFORMATION [None]
  - BLOOD PRESSURE INCREASED [None]
  - CEREBRAL HAEMATOMA [None]
  - COMA [None]
